FAERS Safety Report 6295106-9 (Version None)
Quarter: 2009Q3

REPORT INFORMATION
  Report Type: 
  Country: None (occurrence: None)
  Receive Date: 20090803
  Receipt Date: 20090727
  Transmission Date: 20100115
  Serious: Yes (Hospitalization, Other)
  Sender: FDA-Public Use
  Company Number: US-CELGENEUS-163-21880-09071954

PATIENT
  Sex: Male

DRUGS (1)
  1. REVLIMID [Suspect]
     Indication: MULTIPLE MYELOMA
     Route: 048
     Dates: start: 20090401

REACTIONS (8)
  - ASTHENIA [None]
  - BALANCE DISORDER [None]
  - BLOOD URINE PRESENT [None]
  - BONE PAIN [None]
  - CALCIUM DEFICIENCY [None]
  - CALCULUS BLADDER [None]
  - EAR PAIN [None]
  - HEADACHE [None]
